FAERS Safety Report 4318800-5 (Version None)
Quarter: 2004Q1

REPORT INFORMATION
  Report Type: 
  Country: None (occurrence: None)
  Receive Date: 20040318
  Receipt Date: 20040305
  Transmission Date: 20041129
  Serious: Yes (Hospitalization)
  Sender: FDA-Public Use
  Company Number: NZ-GLAXOSMITHKLINE-B0326122A

PATIENT
  Age: 62 Year
  Sex: Male
  Weight: 110 kg

DRUGS (3)
  1. AVANDIA [Suspect]
     Route: 065
  2. INSULIN [Concomitant]
  3. UNSPECIFIED MEDICATION [Concomitant]

REACTIONS (1)
  - HYPERKALAEMIA [None]
